FAERS Safety Report 21649396 (Version 2)
Quarter: 2022Q4

REPORT INFORMATION
  Report Type: Spontaneous
  Country: US (occurrence: US)
  Receive Date: 20221128
  Receipt Date: 20221222
  Transmission Date: 20230113
  Serious: Yes (Other)
  Sender: FDA-Public Use
  Company Number: US-002147023-NVSC2022US265348

PATIENT
  Sex: Male

DRUGS (13)
  1. TRAMETINIB [Suspect]
     Active Substance: TRAMETINIB
     Indication: Neuroblastoma recurrent
     Dosage: 0.6 MG, QD
     Route: 065
  2. DABRAFENIB [Suspect]
     Active Substance: DABRAFENIB
     Indication: Neuroblastoma
     Dosage: 0.85 MG, QD (STRENGTH: 0.05 MG/ML)
     Route: 065
  3. IOBENGUANE [Concomitant]
     Active Substance: IOBENGUANE
     Indication: Product used for unknown indication
     Dosage: UNK
     Route: 065
     Dates: start: 20220120
  4. TOPOTECAN [Concomitant]
     Active Substance: TOPOTECAN HYDROCHLORIDE
     Indication: Product used for unknown indication
     Dosage: UNK
     Route: 065
  5. CYCLOPHOSPHAMIDE [Concomitant]
     Active Substance: CYCLOPHOSPHAMIDE
     Indication: Product used for unknown indication
     Dosage: UNK
     Route: 065
  6. ETOPOSIDE [Concomitant]
     Active Substance: ETOPOSIDE
     Indication: Product used for unknown indication
     Dosage: UNK
     Route: 065
  7. CISPLATIN [Concomitant]
     Active Substance: CISPLATIN
     Indication: Product used for unknown indication
     Dosage: UNK
     Route: 065
  8. VINCRISTINE [Concomitant]
     Active Substance: VINCRISTINE
     Indication: Product used for unknown indication
     Dosage: UNK
     Route: 065
  9. DOXORUBICIN [Concomitant]
     Active Substance: DOXORUBICIN
     Indication: Product used for unknown indication
     Dosage: UNK
     Route: 065
  10. IRINOTECAN [Concomitant]
     Active Substance: IRINOTECAN
     Indication: Product used for unknown indication
     Dosage: UNK
     Route: 065
  11. TEMOZOLOMIDE [Concomitant]
     Active Substance: TEMOZOLOMIDE
     Indication: Product used for unknown indication
     Dosage: UNK
     Route: 065
  12. DINUTUXIMAB [Concomitant]
     Active Substance: DINUTUXIMAB
     Indication: Product used for unknown indication
     Dosage: UNK
     Route: 065
  13. SELUMETINIB [Concomitant]
     Active Substance: SELUMETINIB
     Indication: Product used for unknown indication
     Dosage: UNK
     Route: 065

REACTIONS (9)
  - Adrenal gland cancer [Unknown]
  - Metastases to bone [Unknown]
  - Weight decreased [Unknown]
  - Back pain [Unknown]
  - Dysphagia [Unknown]
  - Malaise [Unknown]
  - Fatigue [Unknown]
  - Pain in extremity [Unknown]
  - Product use in unapproved indication [Unknown]

NARRATIVE: CASE EVENT DATE: 20211001
